FAERS Safety Report 21613828 (Version 1)
Quarter: 2022Q4

REPORT INFORMATION
  Report Type: Spontaneous
  Country: US (occurrence: None)
  Receive Date: 20221117
  Receipt Date: 20221117
  Transmission Date: 20230112
  Serious: Yes (unspecified)
  Sender: FDA-Public Use
  Company Number: None

PATIENT
  Sex: Female
  Weight: 61.23 kg

DRUGS (3)
  1. IMITREX [Suspect]
     Active Substance: SUMATRIPTAN SUCCINATE
  2. RIZATRIPTAN [Suspect]
     Active Substance: RIZATRIPTAN
  3. ELETRIPTAN [Suspect]
     Active Substance: ELETRIPTAN

REACTIONS (4)
  - Dysphoria [None]
  - Paraesthesia [None]
  - Hypoaesthesia [None]
  - Dyspnoea [None]

NARRATIVE: CASE EVENT DATE: 19890101
